FAERS Safety Report 6712667-3 (Version None)
Quarter: 2010Q2

REPORT INFORMATION
  Report Type: 
  Country: None (occurrence: None)
  Receive Date: 20100505
  Receipt Date: 20100505
  Transmission Date: 20101027
  Serious: Yes (Other)
  Sender: FDA-Public Use
  Company Number: None

PATIENT
  Age: 37 Year
  Sex: Female
  Weight: 69.4003 kg

DRUGS (1)
  1. DEPO-PROVERA [Suspect]
     Indication: CONTRACEPTION
     Dosage: 150MG Q 12 WEEKS IM
     Route: 030
     Dates: start: 20080328, end: 20100107

REACTIONS (3)
  - DRUG EXPOSURE DURING PREGNANCY [None]
  - GALACTORRHOEA [None]
  - PREGNANCY [None]
